FAERS Safety Report 20202942 (Version 3)
Quarter: 2022Q2

REPORT INFORMATION
  Report Type: Spontaneous
  Country: CA (occurrence: CA)
  Receive Date: 20211218
  Receipt Date: 20220514
  Transmission Date: 20220720
  Serious: Yes (Other)
  Sender: FDA-Public Use
  Company Number: CA-CELLTRION INC.-2021CA017398

PATIENT

DRUGS (6)
  1. INFLECTRA [Suspect]
     Active Substance: INFLIXIMAB-DYYB
     Indication: Colitis ulcerative
     Dosage: 250 MG  0, 2, 6, THEN EVERY 8 WEEKS
     Route: 042
     Dates: start: 20210707, end: 20210707
  2. INFLECTRA [Suspect]
     Active Substance: INFLIXIMAB-DYYB
     Dosage: 300MG 2, 6, THEN EVERY 8 WEEKS
     Route: 042
     Dates: start: 20210721, end: 20211012
  3. INFLECTRA [Suspect]
     Active Substance: INFLIXIMAB-DYYB
     Dosage: 550MG, EVERY 8 WEEKS
     Route: 042
     Dates: start: 20211207, end: 20220322
  4. EUROFER [FERROUS SULFATE] [Concomitant]
     Dosage: 300 MG (DOSAGE FREQUENCY: UNKNOWN)
     Route: 065
  5. MELOXICAM [Concomitant]
     Active Substance: MELOXICAM
     Dosage: 1 DF, (DOSAGE INFO: UNKNOWN)
     Route: 065
     Dates: start: 20210429
  6. PREDNISONE [Concomitant]
     Active Substance: PREDNISONE
     Dosage: 35 MG, (DOSAGE FREQUENCY: UNKNOWN)
     Route: 065

REACTIONS (5)
  - Pruritus [Recovered/Resolved]
  - Erythema [Recovered/Resolved]
  - Off label use [Unknown]
  - Drug level below therapeutic [Unknown]
  - Drug specific antibody present [Unknown]

NARRATIVE: CASE EVENT DATE: 20210101
